FAERS Safety Report 6553367-2 (Version None)
Quarter: 2010Q1

REPORT INFORMATION
  Report Type: 
  Country: None (occurrence: None)
  Receive Date: 20100127
  Receipt Date: 20091102
  Transmission Date: 20100710
  Serious: No
  Sender: FDA-Public Use
  Company Number: A0800117A

PATIENT
  Age: 53 Year
  Sex: Female

DRUGS (4)
  1. IMITREX [Suspect]
     Indication: MIGRAINE
     Dosage: 6MG AS REQUIRED
     Route: 058
     Dates: start: 19990101
  2. IMITREX [Suspect]
     Route: 048
  3. SOMA [Concomitant]
  4. PERCOCET [Concomitant]

REACTIONS (3)
  - CONTUSION [None]
  - PRODUCT QUALITY ISSUE [None]
  - VARICOSE VEIN [None]
